FAERS Safety Report 5156736-0 (Version None)
Quarter: 2006Q4

REPORT INFORMATION
  Report Type: 
  Country: None (occurrence: None)
  Receive Date: 20061122
  Receipt Date: 20061011
  Transmission Date: 20070319
  Serious: Yes (Hospitalization, Other)
  Sender: FDA-Public Use
  Company Number: US-MERCK-0610USA08499

PATIENT
  Age: 74 Year
  Sex: Female
  Weight: 46 kg

DRUGS (11)
  1. VYTORIN [Suspect]
     Indication: HYPERLIPIDAEMIA
     Route: 048
     Dates: end: 20060827
  2. VYTORIN [Suspect]
     Route: 048
     Dates: start: 20060828, end: 20060923
  3. LOPID [Suspect]
     Indication: HYPERCHOLESTEROLAEMIA
     Route: 048
  4. LOPRESSOR [Concomitant]
     Indication: HYPERTENSION
     Route: 048
  5. LASIX [Concomitant]
     Route: 065
  6. ACIPHEX [Concomitant]
     Indication: GASTROOESOPHAGEAL REFLUX DISEASE
     Route: 048
  7. AMBIEN [Concomitant]
     Route: 065
  8. RHINOCORT [Concomitant]
     Route: 065
  9. BONIVA [Concomitant]
     Indication: OSTEOPOROSIS
     Route: 048
  10. LORTAB [Concomitant]
     Indication: BACK PAIN
     Route: 048
  11. ASPIRIN [Concomitant]
     Route: 065

REACTIONS (3)
  - DEHYDRATION [None]
  - RENAL FAILURE ACUTE [None]
  - RHABDOMYOLYSIS [None]
